FAERS Safety Report 8491682 (Version 2)
Quarter: 2015Q1

REPORT INFORMATION
  Report Type: Report from Study
  Country: US (occurrence: US)
  Receive Date: 20120403
  Receipt Date: 20150116
  Transmission Date: 20150721
  Serious: Yes (Death)
  Sender: FDA-Public Use
  Company Number: US-ROCHE-1055845

PATIENT
  Age: 50 Year
  Sex: Female

DRUGS (7)
  1. HEPARIN [Concomitant]
     Active Substance: HEPARIN SODIUM
  2. NORMAL SALINE [Concomitant]
     Active Substance: SODIUM CHLORIDE
     Route: 042
  3. NORMAL SALINE [Concomitant]
     Active Substance: SODIUM CHLORIDE
     Route: 042
  4. AVASTIN [Suspect]
     Active Substance: BEVACIZUMAB
     Dosage: RECEIVED ON 26/OCT/2010 AND 19/NOV/2010 AT SAME DOSE.
     Route: 042
     Dates: start: 20101005
  5. AVASTIN [Suspect]
     Active Substance: BEVACIZUMAB
     Dosage: RECEIVED ON 04/JAN/2011 AT SAME DOSE.
     Route: 042
     Dates: start: 20101214
  6. AVASTIN [Suspect]
     Active Substance: BEVACIZUMAB
     Indication: COLON CANCER
     Dosage: RECEIVED ON 22/FEB/2011, 05/MAR/2011, 13/APR/2011, 04/MAY/2011, 25/MAY/2011 AND 15/JUN/2011.
     Route: 042
     Dates: start: 20110201
  7. XELODA [Suspect]
     Active Substance: CAPECITABINE
     Indication: COLON CANCER
     Dosage: 6 TAB A DAY FOR 14 DAYS,THEN OFF FOR 7 DAYS.
     Route: 048

REACTIONS (1)
  - Death [Fatal]

NARRATIVE: CASE EVENT DATE: 20120217
